FAERS Safety Report 7227165-0 (Version None)
Quarter: 2011Q1

REPORT INFORMATION
  Report Type: 
  Country: None (occurrence: None)
  Receive Date: 20110111
  Receipt Date: 20110111
  Transmission Date: 20110831
  Serious: No
  Sender: FDA-Public Use
  Company Number: None

PATIENT

DRUGS (1)
  1. OXYCONTIN [Suspect]

REACTIONS (9)
  - DIARRHOEA [None]
  - RASH [None]
  - URINARY TRACT INFECTION [None]
  - CYSTITIS [None]
  - VOMITING [None]
  - NAUSEA [None]
  - PRODUCT SUBSTITUTION ISSUE [None]
  - ABDOMINAL RIGIDITY [None]
  - MUSCLE SPASMS [None]
